FAERS Safety Report 16177449 (Version 1)
Quarter: 2019Q2

REPORT INFORMATION
  Report Type: Spontaneous
  Country: BR (occurrence: BR)
  Receive Date: 20190410
  Receipt Date: 20190410
  Transmission Date: 20190711
  Serious: Yes (Other)
  Sender: FDA-Public Use
  Company Number: BR-ROCHE-2295261

PATIENT
  Age: 70 Year
  Sex: Female

DRUGS (2)
  1. ACTEMRA [Suspect]
     Active Substance: TOCILIZUMAB
     Indication: RHEUMATOID ARTHRITIS
     Route: 065
     Dates: start: 201406
  2. PREDNISONE. [Concomitant]
     Active Substance: PREDNISONE

REACTIONS (8)
  - Gingival bleeding [Unknown]
  - Joint effusion [Unknown]
  - Upper gastrointestinal haemorrhage [Unknown]
  - Pneumonia [Unknown]
  - Osteopenia [Unknown]
  - Arterial fibrosis [Unknown]
  - Gastric ulcer [Not Recovered/Not Resolved]
  - Autoimmune arthritis [Unknown]

NARRATIVE: CASE EVENT DATE: 2016
